FAERS Safety Report 22210241 (Version 1)
Quarter: 2023Q2

REPORT INFORMATION
  Report Type: Other
  Country: GB (occurrence: GB)
  Receive Date: 20230414
  Receipt Date: 20230414
  Transmission Date: 20230722
  Serious: Yes (Other)
  Sender: FDA-Public Use
  Company Number: GB-MHRA-MED-202304061810236000-SJBHN

PATIENT

DRUGS (4)
  1. SERTRALINE [Suspect]
     Active Substance: SERTRALINE HYDROCHLORIDE
     Indication: Product used for unknown indication
     Dosage: 50 MILLIGRAM (AT 6 PM)
     Route: 065
     Dates: start: 20230404
  2. NEFOPAM [Suspect]
     Active Substance: NEFOPAM
     Indication: Product used for unknown indication
     Dosage: 60 MILLIGRAM (FIRST DOSE AT 3 PM)
     Route: 065
     Dates: start: 20230404
  3. NEFOPAM [Suspect]
     Active Substance: NEFOPAM
     Dosage: 60 MILLIGRAM (AT 11 PM)
     Route: 065
     Dates: start: 20230404
  4. NEFOPAM [Suspect]
     Active Substance: NEFOPAM
     Dosage: 60 MILLIGRAM (AT 8 AM)
     Route: 065
     Dates: start: 20230405

REACTIONS (4)
  - Myoclonus [Recovering/Resolving]
  - Palpitations [Recovering/Resolving]
  - Confusional state [Recovered/Resolved]
  - Dizziness [Recovered/Resolved]

NARRATIVE: CASE EVENT DATE: 20230405
